FAERS Safety Report 7631447-8 (Version None)
Quarter: 2011Q3

REPORT INFORMATION
  Report Type: 
  Country: None (occurrence: None)
  Receive Date: 20110725
  Receipt Date: 20110711
  Transmission Date: 20111222
  Serious: Yes (Life-Threatening, Hospitalization, Other)
  Sender: FDA-Public Use
  Company Number: US-ELI_LILLY_AND_COMPANY-US201107003744

PATIENT
  Age: 49 Year
  Sex: Female

DRUGS (1)
  1. ZYPREXA [Suspect]

REACTIONS (5)
  - HAEMODYNAMIC INSTABILITY [None]
  - PANCREATITIS ACUTE [None]
  - ACUTE RESPIRATORY DISTRESS SYNDROME [None]
  - HYPERTRIGLYCERIDAEMIA [None]
  - ABDOMINAL COMPARTMENT SYNDROME [None]
